FAERS Safety Report 23268642 (Version 1)
Quarter: 2023Q4

REPORT INFORMATION
  Report Type: Other
  Country: SE (occurrence: SE)
  Receive Date: 20231206
  Receipt Date: 20231206
  Transmission Date: 20240110
  Serious: Yes (Disabling)
  Sender: FDA-Public Use
  Company Number: None

PATIENT
  Age: 75 Year
  Sex: Male
  Weight: 85 kg

DRUGS (2)
  1. OMNIPAQUE [Suspect]
     Active Substance: IOHEXOL
     Indication: X-ray
     Dosage: DRINK TOGETHER WITH A LITER OF WATER, ONCE
     Route: 048
     Dates: start: 20230712, end: 20230712
  2. OMNIPAQUE [Suspect]
     Active Substance: IOHEXOL
     Indication: Gastric dilatation

REACTIONS (2)
  - Bone pain [Not Recovered/Not Resolved]
  - Arthralgia [Unknown]

NARRATIVE: CASE EVENT DATE: 20230713
